FAERS Safety Report 25626753 (Version 1)
Quarter: 2025Q3

REPORT INFORMATION
  Report Type: Spontaneous
  Country: EU (occurrence: EU)
  Receive Date: 20250731
  Receipt Date: 20250731
  Transmission Date: 20251020
  Serious: Yes (Disabling)
  Sender: CHEPLAPHARM
  Company Number: EU-CHEPLA-2025009215

PATIENT
  Age: 65 Year
  Sex: Female

DRUGS (3)
  1. CLONAZEPAM [Suspect]
     Active Substance: CLONAZEPAM
     Indication: Product used for unknown indication
     Dosage: SN: 21948398766667, PC: 04260095688132; 1 TABLET AT NIGHT?DAILY DOSE: 1 DOSAGE FORM
     Route: 048
  2. INDERAL [Concomitant]
     Active Substance: PROPRANOLOL HYDROCHLORIDE
     Indication: Product used for unknown indication
  3. OMEPRAZOLE [Concomitant]
     Active Substance: OMEPRAZOLE
     Indication: Product used for unknown indication

REACTIONS (11)
  - Malaise [Recovering/Resolving]
  - Eye pain [Recovering/Resolving]
  - Ocular hyperaemia [Recovering/Resolving]
  - Headache [Recovering/Resolving]
  - Insomnia [Recovering/Resolving]
  - Eye injury [Recovering/Resolving]
  - Photophobia [Recovering/Resolving]
  - Product package associated injury [Recovering/Resolving]
  - Product with quality issue administered [Recovering/Resolving]
  - Visual impairment [Recovering/Resolving]
  - Product container issue [Unknown]

NARRATIVE: CASE EVENT DATE: 20250723
